FAERS Safety Report 6783343-6 (Version None)
Quarter: 2010Q2

REPORT INFORMATION
  Report Type: 
  Country: None (occurrence: None)
  Receive Date: 20100622
  Receipt Date: 20100614
  Transmission Date: 20101027
  Serious: Yes (Hospitalization)
  Sender: FDA-Public Use
  Company Number: FR-KINGPHARMUSA00001-K201000534

PATIENT
  Age: 68 Year
  Sex: Male

DRUGS (3)
  1. ALTACE [Suspect]
     Indication: HYPERTENSION
     Dosage: 5 MG, QD
     Route: 048
     Dates: start: 20090101
  2. COLCHYSAT [Concomitant]
     Dosage: UNK
     Dates: start: 20090807, end: 20090808
  3. AMLODIPINE [Concomitant]
     Dosage: UNK
     Dates: start: 20090401

REACTIONS (8)
  - DERMATOMYOSITIS [None]
  - MUSCULAR WEAKNESS [None]
  - MYALGIA [None]
  - MYOPATHY [None]
  - PERIORBITAL OEDEMA [None]
  - RASH [None]
  - SKIN ATROPHY [None]
  - SKIN EXFOLIATION [None]
